FAERS Safety Report 6760904-1 (Version None)
Quarter: 2010Q2

REPORT INFORMATION
  Report Type: 
  Country: None (occurrence: None)
  Receive Date: 20100608
  Receipt Date: 20100603
  Transmission Date: 20101027
  Serious: Yes (Hospitalization)
  Sender: FDA-Public Use
  Company Number: IT-BRISTOL-MYERS SQUIBB COMPANY-14999858

PATIENT
  Age: 80 Year
  Sex: Female

DRUGS (3)
  1. COUMADIN [Suspect]
     Indication: ATRIAL FIBRILLATION
     Dosage: TO 01MAR2010, UNTIL 12JAN2010
     Route: 048
     Dates: start: 20070315
  2. DILTIAZEM [Concomitant]
     Dosage: DILZENE 60 MG MODIFIED RELEASE ORAL TABS 1 DF =2 POSOLOGIC UNITS
     Route: 048
     Dates: start: 20070301, end: 20100220
  3. APROVEL TABS 150 MG [Concomitant]
     Dates: start: 20070301, end: 20100301

REACTIONS (4)
  - FALL [None]
  - HEAD INJURY [None]
  - INTERNATIONAL NORMALISED RATIO DECREASED [None]
  - SUBDURAL HAEMATOMA [None]
